FAERS Safety Report 20897355 (Version 4)
Quarter: 2022Q3

REPORT INFORMATION
  Report Type: Spontaneous
  Country: US (occurrence: US)
  Receive Date: 20220531
  Receipt Date: 20220701
  Transmission Date: 20221027
  Serious: No
  Sender: FDA-Public Use
  Company Number: US-PFIZER INC-202200761497

PATIENT
  Age: 68 Year
  Sex: Female

DRUGS (8)
  1. PAXLOVID [Suspect]
     Active Substance: NIRMATRELVIR\RITONAVIR
     Indication: COVID-19
     Dosage: [PF-07321332 300 MG]/[RITONAVIR 100 MG]; 2X/DAY
     Dates: start: 20220509, end: 20220513
  2. VALSARTAN [Concomitant]
     Active Substance: VALSARTAN
     Dosage: 80 MG, DAILY
  3. PANTOPRAZOLE [Concomitant]
     Active Substance: PANTOPRAZOLE
     Dosage: 40 MG, DAILY
  4. FEXOFENADINE [Concomitant]
     Active Substance: FEXOFENADINE HYDROCHLORIDE
     Dosage: UNK
  5. FLUTICASONE [Concomitant]
     Active Substance: FLUTICASONE
     Dosage: UNK, 2X/DAY (2 SPARYS)
  6. DOXYCYCLINE CALCIUM [Concomitant]
     Active Substance: DOXYCYCLINE CALCIUM
     Indication: Diarrhoea
     Dosage: 100 MG, 2X/DAY
     Route: 048
  7. ESTRING [Concomitant]
     Active Substance: ESTRADIOL
     Dosage: 2 MG (90 D)
     Dates: start: 201305
  8. PRAVASTATIN [Concomitant]
     Active Substance: PRAVASTATIN
     Dosage: 40 MG, DAILY

REACTIONS (5)
  - Fatigue [Recovered/Resolved]
  - Sneezing [Recovered/Resolved]
  - Oropharyngeal pain [Recovered/Resolved]
  - Rhinorrhoea [Recovered/Resolved]
  - Nasal congestion [Recovered/Resolved]

NARRATIVE: CASE EVENT DATE: 20220518
